FAERS Safety Report 26059803 (Version 1)
Quarter: 2025Q4

REPORT INFORMATION
  Report Type: Spontaneous
  Country: US (occurrence: US)
  Receive Date: 20251118
  Receipt Date: 20251118
  Transmission Date: 20260117
  Serious: No
  Sender: TEVA
  Company Number: US-TEVA-VS-3387933

PATIENT
  Age: 61 Year

DRUGS (1)
  1. AUSTEDO XR [Suspect]
     Active Substance: DEUTETRABENAZINE
     Indication: Bipolar disorder
     Dosage: QHS
     Route: 065

REACTIONS (1)
  - Drug ineffective [Unknown]
